FAERS Safety Report 22691141 (Version 2)
Quarter: 2023Q4

REPORT INFORMATION
  Report Type: Spontaneous
  Country: SI (occurrence: SI)
  Receive Date: 20230711
  Receipt Date: 20231019
  Transmission Date: 20240110
  Serious: Yes (Other)
  Sender: FDA-Public Use
  Company Number: SI-PFIZER INC-PV202300117925

PATIENT
  Age: 41 Year
  Sex: Female

DRUGS (4)
  1. MYLOTARG [Suspect]
     Active Substance: GEMTUZUMAB OZOGAMICIN
     Indication: Acute myeloid leukaemia
     Dosage: 4.5, 4.9, 4.9 MG IN INDUCTION
  2. CYTARABINE [Suspect]
     Active Substance: CYTARABINE
     Dosage: DA 3+7
  3. CYTARABINE [Suspect]
     Active Substance: CYTARABINE
     Dosage: 3 CYCLES ARA-C 1.GG/12H 1, 3, 5 DAY
  4. DAUNORUBICIN [Suspect]
     Active Substance: DAUNORUBICIN
     Dosage: DA 3+7

REACTIONS (5)
  - Cardiac failure acute [Unknown]
  - Pulmonary oedema [Unknown]
  - Septic cardiomyopathy [Unknown]
  - Breast cellulitis [Unknown]
  - Mucosal inflammation [Unknown]

NARRATIVE: CASE EVENT DATE: 20210101
